FAERS Safety Report 8076361-1 (Version None)
Quarter: 2012Q1

REPORT INFORMATION
  Report Type: 
  Country: None (occurrence: None)
  Receive Date: 20120127
  Receipt Date: 20120123
  Transmission Date: 20120608
  Serious: Yes (Other)
  Sender: FDA-Public Use
  Company Number: JP-ROCHE-1033029

PATIENT
  Age: 53 Year
  Sex: Male

DRUGS (1)
  1. BEVACIZUMAB [Suspect]
     Indication: DIABETIC RETINOPATHY
     Dosage: DOSE: 1.25 MG/0.05 ML
     Route: 050

REACTIONS (2)
  - RETINAL DISORDER [None]
  - MACULAR OEDEMA [None]
